FAERS Safety Report 7712883-8 (Version None)
Quarter: 2011Q3

REPORT INFORMATION
  Report Type: 
  Country: None (occurrence: None)
  Receive Date: 20110826
  Receipt Date: 20110812
  Transmission Date: 20111222
  Serious: Yes (Hospitalization)
  Sender: FDA-Public Use
  Company Number: PHHY2011ZA70813

PATIENT
  Sex: Male

DRUGS (16)
  1. ATORVASTATIN [Concomitant]
     Dosage: 20 OT, UNK
     Dates: start: 20110608
  2. DIOVAN HCT [Concomitant]
     Dosage: 160 OT, UNK
     Dates: start: 20091012, end: 20110429
  3. CARLOC [Concomitant]
     Dosage: 12.5 OT, UNK
     Dates: start: 20100216, end: 20100330
  4. AMLOC [Concomitant]
     Dosage: 10 OT, UNK
     Dates: start: 20091012, end: 20110429
  5. VALSARTAN/HYDROCHLOORTHIAZIDE [Concomitant]
     Dosage: 160 OT, UNK
     Dates: start: 20010509, end: 20110623
  6. ASPIRIN [Concomitant]
     Dosage: 81 OT, UNK
     Dates: start: 20110623
  7. SPIRONOLACTONE [Concomitant]
     Dosage: 25 OT, UNK
     Dates: start: 20100216
  8. DIOVAN [Suspect]
     Dosage: 320 OT, UNK
     Dates: start: 20110720
  9. ZOMVEK [Concomitant]
     Dosage: 160 MG, BID
     Dates: start: 20110530
  10. CARLOC [Concomitant]
     Dosage: 6.25 OT, UNK
     Dates: start: 20091116, end: 20100216
  11. CARLOC [Concomitant]
     Dosage: 6.25 AND 12.5 OT, UNK
     Dates: start: 20100330, end: 20110429
  12. DIOVAN [Suspect]
     Indication: HYPERTENSION
     Dosage: UNK UKN, UNK
     Dates: start: 20090101
  13. DISPRIN [Concomitant]
     Dosage: UNK UKN, UNK
     Dates: start: 20041130, end: 20110623
  14. CARLOC [Concomitant]
     Dosage: 25 OT, UNK
     Dates: start: 20040318, end: 20091116
  15. VALSARTAN [Concomitant]
     Dosage: 320 MG, UNK
     Dates: start: 20110718
  16. CARLOC [Concomitant]
     Dosage: 12.5 AND 25 OT, UNK
     Dates: start: 20110429

REACTIONS (6)
  - DYSPHONIA [None]
  - BLADDER DISORDER [None]
  - LOSS OF CONSCIOUSNESS [None]
  - HEAT EXHAUSTION [None]
  - CYANOSIS [None]
  - OROPHARYNGEAL PAIN [None]
